FAERS Safety Report 20136692 (Version 1)
Quarter: 2021Q4

REPORT INFORMATION
  Report Type: Spontaneous
  Country: MX (occurrence: MX)
  Receive Date: 20211201
  Receipt Date: 20211201
  Transmission Date: 20220303
  Serious: Yes (Other)
  Sender: FDA-Public Use
  Company Number: MX-ANIPHARMA-2021-MX-000037

PATIENT
  Age: 45 Year
  Sex: Male

DRUGS (4)
  1. CANDESARTAN CILEXETIL AND HYDROCHLOROTHIAZIDE [Suspect]
     Active Substance: CANDESARTAN CILEXETIL\HYDROCHLOROTHIAZIDE
     Indication: Hypertension
     Dosage: 1 TABLET ONCE A DAY
     Route: 048
     Dates: start: 202006, end: 202012
  2. CONCOR AM [Concomitant]
     Dosage: QD
     Route: 048
     Dates: start: 202012
  3. JANUMET XR [Concomitant]
     Active Substance: METFORMIN HYDROCHLORIDE\SITAGLIPTIN PHOSPHATE
     Dosage: QD
     Route: 048
     Dates: start: 202006
  4. THOREVA [Concomitant]
     Dosage: QD
     Route: 048
     Dates: start: 202006

REACTIONS (1)
  - Erectile dysfunction [Recovered/Resolved]

NARRATIVE: CASE EVENT DATE: 20200701
